FAERS Safety Report 7221793 (Version 3)
Quarter: 2012Q4

REPORT INFORMATION
  Report Type: 
  Country: CA (occurrence: CA)
  Receive Date: 20091217
  Receipt Date: 20121109
  Transmission Date: 20130627
  Serious: Yes (Death, Hospitalization, Other)
  Sender: FDA-Public Use
  Company Number: PHHY2009CA32606

PATIENT
  Sex: Female

DRUGS (4)
  1. SANDOSTATIN LAR [Suspect]
     Indication: NEUROENDOCRINE TUMOUR
     Dosage: 30 mg, TIW
     Route: 030
     Dates: start: 20051107
  2. SANDOSTATIN LAR [Suspect]
     Dosage: 40 mg, TIW
     Route: 030
     Dates: start: 20091117
  3. SANDOSTATIN LAR [Suspect]
     Dosage: 30 mg, TIW
     Route: 030
  4. INSULIN [Concomitant]

REACTIONS (13)
  - Death [Fatal]
  - Weight decreased [Unknown]
  - Blood pressure increased [Unknown]
  - Fatigue [Unknown]
  - Blood glucose increased [Unknown]
  - Nasopharyngitis [Unknown]
  - Cough [Unknown]
  - Hyperhidrosis [Unknown]
  - Nausea [Unknown]
  - Diarrhoea [Unknown]
  - Heart rate increased [Unknown]
  - Dizziness [Unknown]
  - Injection site pain [Unknown]
